FAERS Safety Report 10924886 (Version 3)
Quarter: 2017Q4

REPORT INFORMATION
  Report Type: Spontaneous
  Country: US (occurrence: US)
  Receive Date: 20150318
  Receipt Date: 20171122
  Transmission Date: 20180320
  Serious: No
  Sender: FDA-Public Use
  Company Number: US-JNJFOC-20140502240

PATIENT
  Sex: Female
  Weight: 53.07 kg

DRUGS (2)
  1. NIZORAL A-D [Suspect]
     Active Substance: KETOCONAZOLE
     Route: 061
  2. NIZORAL A-D [Suspect]
     Active Substance: KETOCONAZOLE
     Indication: DRUG THERAPY
     Dosage: EVERY OTHER DAY
     Route: 061
     Dates: start: 20140418, end: 20140502

REACTIONS (1)
  - Drug ineffective [Unknown]
